FAERS Safety Report 5414871-3 (Version None)
Quarter: 2007Q3

REPORT INFORMATION
  Report Type: 
  Country: None (occurrence: None)
  Receive Date: 20070815
  Receipt Date: 20070808
  Transmission Date: 20080115
  Serious: Yes (Hospitalization)
  Sender: FDA-Public Use
  Company Number: PHBS2007JP12084

PATIENT
  Age: 77 Year
  Sex: Female

DRUGS (4)
  1. OXYGEN THERAPY [Concomitant]
  2. LUDIOMIL [Suspect]
     Indication: DEPRESSION
     Dosage: UNK, UNK
     Route: 048
     Dates: start: 20060801, end: 20070718
  3. ROXATIDINE ACETATE HCL [Suspect]
     Route: 048
     Dates: start: 20061001, end: 20070718
  4. URSO 250 [Suspect]
     Route: 048
     Dates: start: 20061001, end: 20070718

REACTIONS (4)
  - BLOOD IMMUNOGLOBULIN E INCREASED [None]
  - EOSINOPHIL COUNT INCREASED [None]
  - EOSINOPHILIC PNEUMONIA [None]
  - INTERSTITIAL LUNG DISEASE [None]
